FAERS Safety Report 10344219 (Version 3)
Quarter: 2014Q4

REPORT INFORMATION
  Report Type: Spontaneous
  Country: DE (occurrence: DE)
  Receive Date: 20140728
  Receipt Date: 20141202
  Transmission Date: 20150528
  Serious: Yes (Hospitalization)
  Sender: FDA-Public Use
  Company Number: DE-UCBSA-118355

PATIENT
  Age: 55 Year
  Sex: Male
  Weight: 120 kg

DRUGS (12)
  1. SIMVASTATIN. [Concomitant]
     Active Substance: SIMVASTATIN
     Dosage: 20 0-0-1 ONCE DAILY (QD)
  2. VIMPAT [Suspect]
     Active Substance: LACOSAMIDE
     Dosage: 300 MG, 2X/DAY (BID),  1-0-1
     Dates: start: 20140310, end: 201403
  3. VIMPAT [Suspect]
     Active Substance: LACOSAMIDE
     Dosage: 400 MG, 2X/DAY (BID), 1-0-1
     Dates: start: 20140317, end: 2014
  4. TAVOR [Concomitant]
     Active Substance: LORAZEPAM
     Dosage: 2.5 MG
  5. METAMIZOL [Concomitant]
     Active Substance: METAMIZOLE SODIUM
     Dosage: 40 DROPS AS NEEDED
  6. VIMPAT [Suspect]
     Active Substance: LACOSAMIDE
     Indication: EPILEPSY
     Dosage: 100 MG, 2X/DAY (BID), 1-0-1,
     Dates: start: 20140224, end: 2014
  7. LAMOTRIGIN [Concomitant]
     Active Substance: LAMOTRIGINE
     Indication: EPILEPSY
     Dosage: 250 MG, 2X/DAY (BID)
  8. BISOPROLOL [Concomitant]
     Active Substance: BISOPROLOL
     Dosage: 2.5  1-0-?, , 2X/DAY (BID)
  9. PANTOPRAZOLE [Concomitant]
     Active Substance: PANTOPRAZOLE SODIUM
     Dosage: 40 1-0-0, ONCE DAILY (QD)
  10. CITALOPRAM [Concomitant]
     Active Substance: CITALOPRAM HYDROBROMIDE
     Dosage: 20 1-0-0 ONCE DAILY (QD)
  11. VIMPAT [Suspect]
     Active Substance: LACOSAMIDE
     Dosage: 200 MG, 2X/DAY (BID), 1-0-1
     Dates: start: 20140303, end: 201403
  12. PHENPROCOUMON [Concomitant]
     Active Substance: PHENPROCOUMON
     Dosage: BASED ON INR VALUE

REACTIONS (14)
  - Overdose [Unknown]
  - Nausea [Recovering/Resolving]
  - Circumstance or information capable of leading to medication error [Unknown]
  - General physical health deterioration [Unknown]
  - Adverse event [Unknown]
  - Headache [Recovering/Resolving]
  - Listless [Recovering/Resolving]
  - Depression [Unknown]
  - Dehydration [Unknown]
  - Dizziness [Not Recovered/Not Resolved]
  - Fall [Unknown]
  - Vomiting [Recovering/Resolving]
  - Fatigue [Recovering/Resolving]
  - Panic attack [Recovering/Resolving]

NARRATIVE: CASE EVENT DATE: 2014
